FAERS Safety Report 10735604 (Version 3)
Quarter: 2015Q1

REPORT INFORMATION
  Report Type: Spontaneous
  Country: US (occurrence: US)
  Receive Date: 20150126
  Receipt Date: 20150311
  Transmission Date: 20150721
  Serious: Yes (Hospitalization)
  Sender: FDA-Public Use
  Company Number: US-AMGEN-USASP2015005959

PATIENT
  Age: 57 Year
  Sex: Female

DRUGS (1)
  1. ENBREL [Suspect]
     Active Substance: ETANERCEPT
     Indication: ANKYLOSING SPONDYLITIS
     Dosage: 25 UNK, 2 TIMES/WK
     Route: 065
     Dates: start: 2005

REACTIONS (6)
  - Weight increased [Not Recovered/Not Resolved]
  - Inappropriate schedule of drug administration [Unknown]
  - Balance disorder [Not Recovered/Not Resolved]
  - Injury associated with device [Not Recovered/Not Resolved]
  - Ligament sprain [Not Recovered/Not Resolved]
  - Gait disturbance [Not Recovered/Not Resolved]

NARRATIVE: CASE EVENT DATE: 201412
